FAERS Safety Report 24991136 (Version 3)
Quarter: 2025Q3

REPORT INFORMATION
  Report Type: Spontaneous
  Country: RU (occurrence: RU)
  Receive Date: 20250220
  Receipt Date: 20250809
  Transmission Date: 20251021
  Serious: Yes (Other)
  Sender: ALEXION PHARMACEUTICALS
  Company Number: RU-ASTRAZENECA-202502RUS011696RU

PATIENT
  Age: 3 Year
  Sex: Male

DRUGS (5)
  1. PULMICORT TURBUHALER [Suspect]
     Active Substance: BUDESONIDE
     Indication: Bronchial obstruction
  2. FENOTEROL HYDROBROMIDE\IPRATROPIUM BROMIDE [Concomitant]
     Active Substance: FENOTEROL HYDROBROMIDE\IPRATROPIUM BROMIDE
     Route: 065
  3. CLARITHROMYCIN [Concomitant]
     Active Substance: CLARITHROMYCIN
     Route: 065
  4. OSELTAMIVIR [Concomitant]
     Active Substance: OSELTAMIVIR
     Route: 065
  5. SODIUM CHLORIDE [Concomitant]
     Active Substance: SODIUM CHLORIDE
     Route: 065

REACTIONS (6)
  - Condition aggravated [Unknown]
  - Pneumonia [Recovered/Resolved]
  - Pertussis [Unknown]
  - Influenza [Not Recovered/Not Resolved]
  - Dyspnoea [Unknown]
  - Off label use [Not Recovered/Not Resolved]
